FAERS Safety Report 4796340-7 (Version None)
Quarter: 2005Q4

REPORT INFORMATION
  Report Type: 
  Country: None (occurrence: None)
  Receive Date: 20051007
  Receipt Date: 20050922
  Transmission Date: 20060501
  Serious: Yes (Hospitalization)
  Sender: FDA-Public Use
  Company Number: 217974

PATIENT
  Age: 48 Year
  Sex: Male

DRUGS (4)
  1. EFALIZUMAB (EFALIZUMAB) PWDR + SOLVENT, INJECTION SOLN, 125MG [Suspect]
     Indication: PSORIASIS
     Dosage: 1 MG/KG, 1/WEEK, SUBCUTANEOUS
     Route: 058
     Dates: start: 20050613, end: 20050829
  2. MOXONIDINE (MOXONIDINE) [Concomitant]
  3. ALLOPURINOL [Concomitant]
  4. CLOTRIMAZOLE [Concomitant]

REACTIONS (6)
  - ARTHRALGIA [None]
  - CYST [None]
  - INFECTION [None]
  - LYMPHADENOPATHY [None]
  - PSORIASIS [None]
  - PYREXIA [None]
